FAERS Safety Report 4281732-5 (Version None)
Quarter: 2004Q1

REPORT INFORMATION
  Report Type: 
  Country: None (occurrence: None)
  Receive Date: 20040129
  Receipt Date: 20040129
  Transmission Date: 20041129
  Serious: Yes (Death)
  Sender: FDA-Public Use
  Company Number: None

PATIENT
  Sex: Female
  Weight: 58.0604 kg

DRUGS (4)
  1. TEMODAR [Suspect]
     Indication: MALIGNANT MELANOMA
     Dosage: 320 MG Q DAY X 5
     Dates: start: 20031209, end: 20031213
  2. TEMODAR [Suspect]
     Indication: METASTASES TO MENINGES
     Dosage: 320 MG Q DAY X 5
     Dates: start: 20031209, end: 20031213
  3. TEMODAR [Suspect]
     Indication: MALIGNANT MELANOMA
     Dosage: 320 MG Q DAY X 5
     Dates: start: 20040106, end: 20040110
  4. TEMODAR [Suspect]
     Indication: METASTASES TO MENINGES
     Dosage: 320 MG Q DAY X 5
     Dates: start: 20040106, end: 20040110

REACTIONS (1)
  - GENERAL PHYSICAL HEALTH DETERIORATION [None]
